FAERS Safety Report 6203064-8 (Version None)
Quarter: 2009Q2

REPORT INFORMATION
  Report Type: 
  Country: None (occurrence: None)
  Receive Date: 20090521
  Receipt Date: 20090521
  Transmission Date: 20091009
  Serious: Yes (Life-Threatening, Hospitalization)
  Sender: FDA-Public Use
  Company Number: None

PATIENT
  Age: 63 Year
  Sex: Female
  Weight: 66.2252 kg

DRUGS (1)
  1. AVELOX [Suspect]
     Indication: UPPER RESPIRATORY TRACT INFECTION
     Dates: start: 20090518, end: 20090518

REACTIONS (9)
  - DYSPHEMIA [None]
  - DYSPNOEA [None]
  - FEELING ABNORMAL [None]
  - HYPOACUSIS [None]
  - LOSS OF CONSCIOUSNESS [None]
  - PRURITUS [None]
  - SPEECH DISORDER [None]
  - TREMOR [None]
  - VISION BLURRED [None]
